FAERS Safety Report 13395265 (Version 1)
Quarter: 2017Q1

REPORT INFORMATION
  Report Type: Spontaneous
  Country: US (occurrence: US)
  Receive Date: 20170331
  Receipt Date: 20170331
  Transmission Date: 20170429
  Serious: No
  Sender: FDA-Public Use
  Company Number: None

PATIENT
  Age: 71 Year
  Sex: Female
  Weight: 89.1 kg

DRUGS (11)
  1. LOVASTATIN. [Concomitant]
     Active Substance: LOVASTATIN
  2. OMEPRAZOL [Concomitant]
     Active Substance: OMEPRAZOLE
  3. CALCIUM [Concomitant]
     Active Substance: CALCIUM
  4. ATENOLOL. [Concomitant]
     Active Substance: ATENOLOL
  5. VITAMIN D [Concomitant]
     Active Substance: CHOLECALCIFEROL
  6. LISINOPRIL. [Concomitant]
     Active Substance: LISINOPRIL
  7. CALTRATE [Concomitant]
     Active Substance: CALCIUM CARBONATE
  8. MULTIVITAMIN [Concomitant]
     Active Substance: VITAMINS
  9. SEVOFLURANE. [Suspect]
     Active Substance: SEVOFLURANE
     Indication: ANAESTHESIA
     Dosage: INTRAVENOUS (NOT OTHERWISE SPECIFIED)
     Route: 042
  10. EFFEXOR XR [Concomitant]
     Active Substance: VENLAFAXINE HYDROCHLORIDE
  11. AMLODYPIN BESYLATE [Concomitant]

REACTIONS (7)
  - Dizziness [None]
  - Pain [None]
  - Hallucination [None]
  - Fatigue [None]
  - Cold-stimulus headache [None]
  - Dyspnoea [None]
  - Feeling abnormal [None]

NARRATIVE: CASE EVENT DATE: 20170310
